FAERS Safety Report 5029039-2 (Version None)
Quarter: 2006Q2

REPORT INFORMATION
  Report Type: 
  Country: None (occurrence: None)
  Receive Date: 20060613
  Receipt Date: 20060530
  Transmission Date: 20061013
  Serious: Yes (Death, Other)
  Sender: FDA-Public Use
  Company Number: 2006BH010582

PATIENT
  Sex: 0

DRUGS (2)
  1. VINORELBINE TARTRATE [Suspect]
     Indication: NON-SMALL CELL LUNG CANCER
  2. GEFITINIB (GEFITINIB) [Suspect]
     Indication: NON-SMALL CELL LUNG CANCER

REACTIONS (1)
  - DEATH [None]
